FAERS Safety Report 19948740 (Version 4)
Quarter: 2022Q3

REPORT INFORMATION
  Report Type: Spontaneous
  Country: US (occurrence: US)
  Receive Date: 20211012
  Receipt Date: 20220708
  Transmission Date: 20221027
  Serious: No
  Sender: FDA-Public Use
  Company Number: US-SA-SAC20211008000042

PATIENT
  Age: 64 Year
  Sex: Male

DRUGS (4)
  1. AUBAGIO [Suspect]
     Active Substance: TERIFLUNOMIDE
     Indication: Multiple sclerosis
     Dosage: 14 MG, QD
     Route: 048
     Dates: start: 202109
  2. AUBAGIO [Suspect]
     Active Substance: TERIFLUNOMIDE
     Dosage: 14 MG, QD
     Route: 048
     Dates: start: 20211001
  3. VIVITROL [Concomitant]
     Active Substance: NALTREXONE
     Dosage: UNK
  4. GILENYA [Concomitant]
     Active Substance: FINGOLIMOD HYDROCHLORIDE
     Dosage: UNK

REACTIONS (9)
  - Hepatic enzyme increased [Unknown]
  - Nausea [Unknown]
  - Sleep disorder [Unknown]
  - Depressed mood [Not Recovered/Not Resolved]
  - Urinary tract infection [Unknown]
  - Pollakiuria [Unknown]
  - Decreased interest [Not Recovered/Not Resolved]
  - Diarrhoea [Not Recovered/Not Resolved]
  - Headache [Not Recovered/Not Resolved]

NARRATIVE: CASE EVENT DATE: 20211004
